FAERS Safety Report 12663571 (Version 1)
Quarter: 2016Q3

REPORT INFORMATION
  Report Type: Spontaneous
  Country: US (occurrence: US)
  Receive Date: 20160818
  Receipt Date: 20160818
  Transmission Date: 20161109
  Serious: No
  Sender: FDA-Public Use
  Company Number: US-ELI_LILLY_AND_COMPANY-US201608007326

PATIENT
  Age: 13 Year
  Sex: Female

DRUGS (2)
  1. GLUCAGON. [Concomitant]
     Active Substance: GLUCAGON
  2. HUMALOG [Suspect]
     Active Substance: INSULIN LISPRO
     Indication: TYPE 1 DIABETES MELLITUS
     Dosage: 30-40 U, QD
     Route: 058
     Dates: start: 2014

REACTIONS (2)
  - Blood glucose increased [Recovering/Resolving]
  - Blood glucose increased [Recovering/Resolving]

NARRATIVE: CASE EVENT DATE: 20160810
